FAERS Safety Report 8819990 (Version 2)
Quarter: 2012Q4

REPORT INFORMATION
  Report Type: 
  Country: GB (occurrence: GB)
  Receive Date: 20121001
  Receipt Date: 20121030
  Transmission Date: 20130627
  Serious: Yes (Other)
  Sender: FDA-Public Use
  Company Number: PHHY2012GB082848

PATIENT
  Age: 31 Year
  Sex: Male

DRUGS (1)
  1. METOPROLOL [Suspect]
     Dosage: 25 mg, UNK
     Route: 048

REACTIONS (1)
  - Drug ineffective [Unknown]
